FAERS Safety Report 15967382 (Version 1)
Quarter: 2019Q1

REPORT INFORMATION
  Report Type: Spontaneous
  Country: IN (occurrence: IN)
  Receive Date: 20190215
  Receipt Date: 20190215
  Transmission Date: 20190418
  Serious: Yes (Life-Threatening, Disabling)
  Sender: FDA-Public Use
  Company Number: None

PATIENT
  Age: 24 Year
  Sex: Male
  Weight: 55 kg

DRUGS (1)
  1. ISOTROIN 20 [Suspect]
     Active Substance: ISOTRETINOIN

REACTIONS (1)
  - Depression [None]

NARRATIVE: CASE EVENT DATE: 20120802
